FAERS Safety Report 7357723-4 (Version None)
Quarter: 2011Q1

REPORT INFORMATION
  Report Type: 
  Country: None (occurrence: None)
  Receive Date: 20110307
  Receipt Date: 20100802
  Transmission Date: 20110831
  Serious: No
  Sender: FDA-Public Use
  Company Number: AEUSA201000287

PATIENT
  Age: 66 Year
  Sex: Male
  Weight: 69 kg

DRUGS (4)
  1. MUCINEX [Concomitant]
  2. AVELOX [Concomitant]
  3. PROLASTIN-C [Suspect]
     Indication: ALPHA-1 ANTI-TRYPSIN DEFICIENCY
     Dosage: 4140 MG, QW, IV
     Route: 042
     Dates: start: 20100601
  4. PROLASTIN [Concomitant]

REACTIONS (2)
  - DECREASED APPETITE [None]
  - PYREXIA [None]
